FAERS Safety Report 5342217-8 (Version None)
Quarter: 2007Q2

REPORT INFORMATION
  Report Type: 
  Country: None (occurrence: None)
  Receive Date: 20070601
  Receipt Date: 20070525
  Transmission Date: 20071010
  Serious: Yes (Hospitalization)
  Sender: FDA-Public Use
  Company Number: IT-ROCHE-499520

PATIENT
  Age: 34 Year
  Sex: Male

DRUGS (1)
  1. INTERFERON ALFA [Suspect]
     Indication: HEPATITIS D
     Dosage: REPORTED AS 9 MUI S.C T.I.W.
     Route: 058

REACTIONS (1)
  - TUBERCULOSIS [None]
